FAERS Safety Report 20450316 (Version 1)
Quarter: 2022Q1

REPORT INFORMATION
  Report Type: Spontaneous
  Country: US (occurrence: None)
  Receive Date: 20220209
  Receipt Date: 20220209
  Transmission Date: 20220423
  Serious: Yes (Other)
  Sender: FDA-Public Use
  Company Number: None

PATIENT
  Age: 65 Year
  Sex: Male
  Weight: 136.98 kg

DRUGS (6)
  1. LIPITOR [Suspect]
     Active Substance: ATORVASTATIN CALCIUM
     Indication: Type V hyperlipidaemia
     Route: 048
     Dates: start: 19851216, end: 20130719
  2. SIMVASTATIN [Suspect]
     Active Substance: SIMVASTATIN
     Indication: Type V hyperlipidaemia
     Dates: start: 19851216, end: 20130719
  3. ATORVASTATIN [Suspect]
     Active Substance: ATORVASTATIN
  4. PRAVASTATIN [Suspect]
     Active Substance: PRAVASTATIN
  5. LOVAZA [Suspect]
     Active Substance: OMEGA-3-ACID ETHYL ESTERS
  6. CRESTOR [Suspect]
     Active Substance: ROSUVASTATIN CALCIUM

REACTIONS (3)
  - Dyspepsia [None]
  - Gastrointestinal ulcer [None]
  - Hepatic enzyme increased [None]

NARRATIVE: CASE EVENT DATE: 20130709
